FAERS Safety Report 20451030 (Version 1)
Quarter: 2022Q1

REPORT INFORMATION
  Report Type: Report from Study
  Country: US (occurrence: US)
  Receive Date: 20220209
  Receipt Date: 20220209
  Transmission Date: 20220423
  Serious: Yes (Death)
  Sender: FDA-Public Use
  Company Number: US-BIOGEN-2022BI01093713

PATIENT
  Sex: Female

DRUGS (1)
  1. VUMERITY [Suspect]
     Active Substance: DIROXIMEL FUMARATE
     Indication: Multiple sclerosis
     Route: 048
     Dates: start: 20210214

REACTIONS (5)
  - Respiratory failure [Fatal]
  - Localised infection [Fatal]
  - Multiple sclerosis [Not Recovered/Not Resolved]
  - Mental impairment [Unknown]
  - Multiple sclerosis [Unknown]
